FAERS Safety Report 13151848 (Version 1)
Quarter: 2017Q1

REPORT INFORMATION
  Report Type: Report from Study
  Country: CO (occurrence: CO)
  Receive Date: 20170125
  Receipt Date: 20170125
  Transmission Date: 20170428
  Serious: Yes (Other)
  Sender: FDA-Public Use
  Company Number: CO-REGENERON PHARMACEUTICALS, INC.-2017-10968

PATIENT

DRUGS (1)
  1. EYLEA [Suspect]
     Active Substance: AFLIBERCEPT
     Indication: NEOVASCULAR AGE-RELATED MACULAR DEGENERATION
     Dosage: 2 DF, Q1MON
     Dates: start: 20130805

REACTIONS (6)
  - Metamorphopsia [Not Recovered/Not Resolved]
  - Product use issue [Unknown]
  - Vision blurred [Unknown]
  - Influenza [Not Recovered/Not Resolved]
  - Intraocular lens implant [Unknown]
  - Influenza like illness [Recovering/Resolving]

NARRATIVE: CASE EVENT DATE: 20130805
